FAERS Safety Report 14843135 (Version 3)
Quarter: 2018Q2

REPORT INFORMATION
  Report Type: Report from Study
  Country: FR (occurrence: FR)
  Receive Date: 20180503
  Receipt Date: 20180618
  Transmission Date: 20180711
  Serious: Yes (Other)
  Sender: FDA-Public Use
  Company Number: PHHO2018FR005636

PATIENT
  Age: 69 Year
  Sex: Female

DRUGS (13)
  1. EVEROLIMUS. [Suspect]
     Active Substance: EVEROLIMUS
     Dosage: 5 MG, QD
     Route: 048
     Dates: start: 20180430
  2. MAGNESIUM [Concomitant]
     Active Substance: MAGNESIUM
     Indication: HYPOMAGNESAEMIA
     Dosage: 48 MG, UNK
     Route: 065
     Dates: start: 20180220
  3. SORAFENIB [Suspect]
     Active Substance: SORAFENIB
     Dosage: 400 MG, QD
     Route: 048
     Dates: start: 20180423
  4. TRAMADOL. [Concomitant]
     Active Substance: TRAMADOL
     Indication: HEADACHE
  5. SORAFENIB [Suspect]
     Active Substance: SORAFENIB
     Indication: OVARIAN CANCER METASTATIC
     Dosage: 400 MG, BID
     Route: 048
     Dates: start: 20180227, end: 20180409
  6. RAMIPRIL. [Concomitant]
     Active Substance: RAMIPRIL
     Indication: HYPERTENSION
     Dosage: 5 MG, UNK
     Route: 065
     Dates: start: 2010
  7. CATAPRESAN [Concomitant]
     Active Substance: CLONIDINE
     Indication: HYPERTENSION
     Dosage: 0.15 MG, UNK
     Route: 065
     Dates: start: 2015
  8. MAGNESIUM [Concomitant]
     Active Substance: MAGNESIUM
     Dosage: 1 DF, UNK
     Route: 065
     Dates: start: 20180305
  9. EVEROLIMUS. [Suspect]
     Active Substance: EVEROLIMUS
     Indication: OVARIAN CANCER METASTATIC
     Dosage: 7.5 MG, QD
     Route: 048
     Dates: start: 20180220, end: 20180402
  10. INEXIUM [Concomitant]
     Active Substance: ESOMEPRAZOLE
     Indication: ABDOMINAL PAIN UPPER
     Dosage: 40 MG, UNK
     Route: 065
     Dates: start: 2013
  11. TRIDESONIT [Concomitant]
     Active Substance: DESONIDE
     Indication: ERYTHEMA
     Dosage: PRN
     Route: 061
     Dates: start: 20180403
  12. TRAMADOL. [Concomitant]
     Active Substance: TRAMADOL
     Indication: PAIN
     Dosage: 50 MG, PRN
     Route: 065
     Dates: start: 2012
  13. RAMIPRIL. [Concomitant]
     Active Substance: RAMIPRIL
     Dosage: 7.5 MG, UNK
     Route: 065
     Dates: start: 20180228

REACTIONS (1)
  - Hidradenitis [Recovered/Resolved]

NARRATIVE: CASE EVENT DATE: 20180409
